FAERS Safety Report 5955672-7 (Version None)
Quarter: 2008Q4

REPORT INFORMATION
  Report Type: 
  Country: None (occurrence: None)
  Receive Date: 20081117
  Receipt Date: 20081104
  Transmission Date: 20090506
  Serious: Yes (Death)
  Sender: FDA-Public Use
  Company Number: JP-ELI_LILLY_AND_COMPANY-JP200811001071

PATIENT
  Age: 55 Year
  Sex: Male

DRUGS (3)
  1. ZYPREXA [Suspect]
     Dosage: UNK, UNKNOWN
     Route: 048
  2. HALOPERIDOL [Concomitant]
     Dosage: UNK, UNKNOWN
     Route: 048
  3. KREMEZIN [Concomitant]
     Dosage: UNK, UNKNOWN
     Route: 048

REACTIONS (3)
  - HYPERGLYCAEMIA [None]
  - PNEUMONIA [None]
  - RENAL FUNCTION TEST ABNORMAL [None]
